FAERS Safety Report 8810083 (Version 2)
Quarter: 2012Q4

REPORT INFORMATION
  Report Type: Report from Study
  Country: FR (occurrence: FR)
  Receive Date: 20120926
  Receipt Date: 20121113
  Transmission Date: 20130627
  Serious: Yes (Hospitalization)
  Sender: FDA-Public Use
  Company Number: FR-PFIZER INC-2012197862

PATIENT
  Age: 52 Year
  Sex: Female
  Weight: 62 kg

DRUGS (2)
  1. BLINDED THERAPY [Suspect]
     Indication: NON-SMALL CELL LUNG CANCER
     Dosage: 7th dose
     Route: 030
     Dates: start: 20120518, end: 20120518
  2. NEURONTIN [Concomitant]
     Indication: THORACOTOMY
     Dosage: 900 mg, 1x/day
     Route: 048
     Dates: start: 20111125

REACTIONS (8)
  - Clavicle fracture [Recovered/Resolved]
  - Multiple injuries [Recovered/Resolved]
  - Road traffic accident [None]
  - Fall [None]
  - Pneumothorax [None]
  - Rib fracture [None]
  - Rib fracture [None]
  - Spinal compression fracture [None]
